FAERS Safety Report 6478514-2 (Version None)
Quarter: 2009Q4

REPORT INFORMATION
  Report Type: 
  Country: None (occurrence: None)
  Receive Date: 20091207
  Receipt Date: 20091127
  Transmission Date: 20100525
  Serious: Yes (Hospitalization)
  Sender: FDA-Public Use
  Company Number: JP-ASTRAZENECA-2009SE30062

PATIENT
  Age: 66 Year
  Sex: Female
  Weight: 62 kg

DRUGS (7)
  1. BLOPRESS [Suspect]
     Indication: HYPERTENSION
     Route: 048
     Dates: start: 20061124, end: 20080726
  2. CALCIUM CHANNEL BLOCKERS [Concomitant]
     Indication: HYPERTENSION
     Route: 065
  3. ANGIOTENSIN II ANTAGONISTS [Concomitant]
     Indication: HYPERTENSION
     Route: 048
  4. ALPHA GLUCOSIDASE INHIBITORS [Concomitant]
     Indication: DIABETES MELLITUS
     Route: 048
  5. SULFONAMIDES, UREA DERIVATIVES [Concomitant]
     Indication: DIABETES MELLITUS
     Route: 048
  6. BIGUANIDES [Concomitant]
     Indication: DIABETES MELLITUS
     Route: 048
  7. ANTITHROMBOTIC AGENTS [Concomitant]
     Route: 065

REACTIONS (1)
  - CEREBRAL HAEMORRHAGE [None]
